FAERS Safety Report 17019444 (Version 2)
Quarter: 2019Q4

REPORT INFORMATION
  Report Type: Report from Study
  Country: JP (occurrence: JP)
  Receive Date: 20191112
  Receipt Date: 20191210
  Transmission Date: 20200122
  Serious: Yes (Other)
  Sender: FDA-Public Use
  Company Number: JP-SAKK-2019SA308430AA

PATIENT
  Age: 66 Year
  Sex: Female
  Weight: 49.6 kg

DRUGS (19)
  1. FLUOROURACIL. [Suspect]
     Active Substance: FLUOROURACIL
     Dosage: 1920 MG/M2, QOW
     Route: 041
     Dates: start: 20190208, end: 20190222
  2. FLUOROURACIL. [Suspect]
     Active Substance: FLUOROURACIL
     Dosage: 2400 MG/M2, 1X
     Route: 041
     Dates: start: 20181012, end: 20181012
  3. IRINOTECAN [Suspect]
     Active Substance: IRINOTECAN
     Dosage: 150 MG/M2, QOW
     Route: 065
     Dates: start: 20181214, end: 20190111
  4. FLUOROURACIL. [Suspect]
     Active Substance: FLUOROURACIL
     Dosage: 400 MG/M2, 1X
     Route: 040
     Dates: start: 20181012, end: 20181012
  5. FLUOROURACIL. [Suspect]
     Active Substance: FLUOROURACIL
     Dosage: 2400 MG/M2, QOW
     Route: 041
     Dates: start: 20181214, end: 20190111
  6. FLUOROURACIL. [Suspect]
     Active Substance: FLUOROURACIL
     Indication: RECTAL CANCER
     Dosage: 320 MG/M2, QOW
     Route: 040
     Dates: start: 20190208, end: 20190222
  7. IRINOTECAN [Suspect]
     Active Substance: IRINOTECAN
     Indication: RECTAL CANCER
     Dosage: 120 MG/M2, QOW
     Route: 065
     Dates: start: 20190208, end: 20190222
  8. CALCIUM FOLINATE [Suspect]
     Active Substance: LEUCOVORIN CALCIUM
     Dosage: 200 MG/M2, 1X
     Route: 065
     Dates: start: 20181109, end: 20181109
  9. FLUOROURACIL. [Suspect]
     Active Substance: FLUOROURACIL
     Dosage: 2400 MG/M2, 1X
     Route: 041
     Dates: start: 20181109, end: 20181109
  10. FLUOROURACIL. [Suspect]
     Active Substance: FLUOROURACIL
     Dosage: 400 MG/M2, QOW
     Route: 040
     Dates: start: 20181214, end: 20190111
  11. CALCIUM FOLINATE [Suspect]
     Active Substance: LEUCOVORIN CALCIUM
     Indication: RECTAL CANCER
     Dosage: 160 MG/M2, QOW
     Route: 065
     Dates: start: 20190208, end: 20190222
  12. AFLIBERCEPT [Suspect]
     Active Substance: AFLIBERCEPT
     Dosage: 4 MG/KG, QOW
     Route: 041
     Dates: start: 20181012, end: 20181109
  13. FLUOROURACIL. [Suspect]
     Active Substance: FLUOROURACIL
     Dosage: 400 MG/M2, 1X
     Route: 040
     Dates: start: 20181109, end: 20181109
  14. IRINOTECAN [Suspect]
     Active Substance: IRINOTECAN
     Dosage: 150 MG/M2, 1X
     Route: 065
     Dates: start: 20181012, end: 20181012
  15. IRINOTECAN [Suspect]
     Active Substance: IRINOTECAN
     Dosage: 150 MG/M2, 1X
     Route: 065
     Dates: start: 20181119, end: 20181119
  16. CALCIUM FOLINATE [Suspect]
     Active Substance: LEUCOVORIN CALCIUM
     Dosage: 200 MG/M2, 1X
     Route: 065
     Dates: start: 20181012, end: 20181012
  17. CALCIUM FOLINATE [Suspect]
     Active Substance: LEUCOVORIN CALCIUM
     Dosage: 200 MG/M2, QOW
     Route: 065
     Dates: start: 20181214, end: 20190111
  18. AFLIBERCEPT [Suspect]
     Active Substance: AFLIBERCEPT
     Indication: RECTAL CANCER
     Dosage: 4 MG/KG, 1X
     Route: 041
     Dates: start: 20190222, end: 20190222
  19. AFLIBERCEPT [Suspect]
     Active Substance: AFLIBERCEPT
     Dosage: 4 MG/KG, QOW
     Route: 041
     Dates: start: 20181130, end: 20190125

REACTIONS (1)
  - Ascites [Recovering/Resolving]

NARRATIVE: CASE EVENT DATE: 20190308
